FAERS Safety Report 22622582 (Version 2)
Quarter: 2023Q2

REPORT INFORMATION
  Report Type: Other
  Country: US (occurrence: US)
  Receive Date: 20230621
  Receipt Date: 20230628
  Transmission Date: 20230722
  Serious: Yes (Hospitalization)
  Sender: FDA-Public Use
  Company Number: US-ALVOGEN-2023091723

PATIENT
  Sex: Male

DRUGS (2)
  1. GABAPENTIN [Suspect]
     Active Substance: GABAPENTIN
     Indication: Lumbar radiculopathy
     Route: 048
  2. ACETAMINOPHEN [Concomitant]
     Active Substance: ACETAMINOPHEN
     Indication: Myofascial pain syndrome
     Dosage: 650?MG PER ORAL EVERY 6?HOURS AS NEEDED, WITH MINIMAL RELIEF OF ?THE PAIN.
     Route: 048

REACTIONS (2)
  - Atrial fibrillation [Recovering/Resolving]
  - Off label use [Unknown]
